FAERS Safety Report 6886104-2 (Version None)
Quarter: 2010Q3

REPORT INFORMATION
  Report Type: 
  Country: None (occurrence: None)
  Receive Date: 20100729
  Receipt Date: 20080806
  Transmission Date: 20110219
  Serious: No
  Sender: FDA-Public Use
  Company Number: US-PFIZER INC-2008065519

PATIENT
  Sex: Female
  Weight: 58.97 kg

DRUGS (2)
  1. CELEBREX [Suspect]
     Indication: INFLAMMATION
     Dates: start: 20080805
  2. LOESTRIN 1.5/30 [Concomitant]

REACTIONS (4)
  - HEADACHE [None]
  - PARAESTHESIA ORAL [None]
  - PYREXIA [None]
  - RASH GENERALISED [None]
